FAERS Safety Report 12832179 (Version 1)
Quarter: 2016Q4

REPORT INFORMATION
  Report Type: Report from Study
  Country: BR (occurrence: BR)
  Receive Date: 20161010
  Receipt Date: 20161010
  Transmission Date: 20170207
  Serious: Yes (Death)
  Sender: FDA-Public Use
  Company Number: PHHY2016BR138880

PATIENT
  Age: 94 Year
  Sex: Male
  Weight: 50 kg

DRUGS (2)
  1. QUETIAPINE. [Concomitant]
     Active Substance: QUETIAPINE
     Indication: PRODUCT USED FOR UNKNOWN INDICATION
     Route: 065
  2. EXELON [Suspect]
     Active Substance: RIVASTIGMINE TARTRATE
     Indication: PARKINSON^S DISEASE
     Dosage: QD
     Route: 065

REACTIONS (4)
  - Product use issue [Unknown]
  - Asthenia [Unknown]
  - Dementia Alzheimer^s type [Fatal]
  - Drug ineffective [Unknown]
